FAERS Safety Report 18457520 (Version 1)
Quarter: 2020Q4

REPORT INFORMATION
  Report Type: Spontaneous
  Country: JP (occurrence: JP)
  Receive Date: 20201030
  Receipt Date: 20201030
  Transmission Date: 20210114
  Serious: Yes (Hospitalization, Other)
  Sender: FDA-Public Use
  Company Number: JP-EXELIXIS-CABO-20033858

PATIENT
  Age: 71 Year
  Sex: Male

DRUGS (2)
  1. CABOMETYX [Suspect]
     Active Substance: CABOZANTINIB S-MALATE
     Indication: RENAL CELL CARCINOMA
     Dosage: 60 MG
     Route: 048
     Dates: start: 20200918, end: 20201019
  2. PREDONINE [Concomitant]
     Active Substance: PREDNISOLONE
     Dosage: UNK
     Route: 065

REACTIONS (8)
  - Epistaxis [Unknown]
  - Malaise [Unknown]
  - Decreased appetite [Unknown]
  - Renal impairment [Unknown]
  - Cholecystitis [Unknown]
  - Faeces discoloured [Unknown]
  - Myelosuppression [Unknown]
  - Hepatic function abnormal [Unknown]

NARRATIVE: CASE EVENT DATE: 20200923
